FAERS Safety Report 5332833-1 (Version None)
Quarter: 2007Q2

REPORT INFORMATION
  Report Type: 
  Country: None (occurrence: None)
  Receive Date: 20070521
  Receipt Date: 20070504
  Transmission Date: 20071010
  Serious: Yes (Hospitalization)
  Sender: FDA-Public Use
  Company Number: DSA_29924_2007

PATIENT
  Age: 43 Year
  Sex: Male

DRUGS (4)
  1. ENALAPRIL MALEATE [Suspect]
     Indication: HYPERTENSION
     Dosage: (10 MG BID ORAL)
     Route: 048
  2. HYDROCHLOROTHIAZIDE [Suspect]
     Indication: HYPERTENSION
     Dosage: (50 MG BID ORAL)
     Route: 048
  3. ATENOLOL [Suspect]
     Indication: HYPERTENSION
     Dosage: (50 MG BID ORAL)
     Route: 048
  4. NIFEDIPINE [Suspect]
     Indication: HYPERTENSION
     Dosage: (40 MG BID ORAL)
     Route: 048

REACTIONS (5)
  - BLOOD PRESSURE INCREASED [None]
  - CONDITION AGGRAVATED [None]
  - DRUG LEVEL DECREASED [None]
  - HEART RATE INCREASED [None]
  - TREATMENT NONCOMPLIANCE [None]
